FAERS Safety Report 6852162-4 (Version None)
Quarter: 2010Q3

REPORT INFORMATION
  Report Type: 
  Country: None (occurrence: None)
  Receive Date: 20100717
  Receipt Date: 20080104
  Transmission Date: 20110219
  Serious: No
  Sender: FDA-Public Use
  Company Number: US-PFIZER INC-2007092538

PATIENT
  Sex: Female
  Weight: 56.7 kg

DRUGS (2)
  1. CHANTIX [Suspect]
     Indication: SMOKING CESSATION THERAPY
     Dosage: INTERVAL: EVERY DAY
     Dates: start: 20071001, end: 20071030
  2. CLIMARA [Concomitant]

REACTIONS (11)
  - ABDOMINAL DISCOMFORT [None]
  - CHEST DISCOMFORT [None]
  - CHEST PAIN [None]
  - DIZZINESS [None]
  - DYSPNOEA [None]
  - FLATULENCE [None]
  - HEADACHE [None]
  - HYPERTENSION [None]
  - MUSCULOSKELETAL STIFFNESS [None]
  - PALPITATIONS [None]
  - TREMOR [None]
